FAERS Safety Report 7545174-9 (Version None)
Quarter: 2011Q2

REPORT INFORMATION
  Report Type: 
  Country: None (occurrence: None)
  Receive Date: 20110614
  Receipt Date: 20110606
  Transmission Date: 20111010
  Serious: Yes (Death, Hospitalization, Other)
  Sender: FDA-Public Use
  Company Number: BE-ELI_LILLY_AND_COMPANY-BE201102001088

PATIENT
  Sex: Female

DRUGS (4)
  1. FORTEO [Suspect]
     Dosage: UNK, UNKNOWN
     Route: 065
     Dates: start: 20100830
  2. MIACALCIN [Concomitant]
     Dosage: UNK, UNKNOWN
     Route: 065
  3. LEDERTREXATE [Concomitant]
     Dosage: UNK, UNKNOWN
     Route: 065
  4. MS CONTIN [Concomitant]
     Dosage: 60 MG, 2/D
     Route: 065

REACTIONS (5)
  - INFECTION [None]
  - LIGAMENT RUPTURE [None]
  - ACCIDENT [None]
  - GENERAL PHYSICAL HEALTH DETERIORATION [None]
  - FEMORAL NECK FRACTURE [None]
